FAERS Safety Report 17582052 (Version 5)
Quarter: 2020Q2

REPORT INFORMATION
  Report Type: Spontaneous
  Country: JP (occurrence: JP)
  Receive Date: 20200325
  Receipt Date: 20200414
  Transmission Date: 20200713
  Serious: Yes (Death, Hospitalization, Disabling, Other)
  Sender: FDA-Public Use
  Company Number: JP-PFIZER INC-2020125802

PATIENT
  Age: 72 Year
  Sex: Male
  Weight: 65 kg

DRUGS (13)
  1. BAYASPIRIN [Concomitant]
     Active Substance: ASPIRIN
     Dosage: 100 MG, ONCE DAILY, MORNING
     Route: 048
  2. CELECOX [Suspect]
     Active Substance: CELECOXIB
     Indication: BACK PAIN
     Dosage: 100 MG, TWICE DAILY, MORNING AND EVENING
     Route: 048
     Dates: start: 20190821, end: 20190904
  3. AMLODIPINE [AMLODIPINE BESILATE] [Concomitant]
     Active Substance: AMLODIPINE BESYLATE
     Dosage: 5 MG, ONCE DAILY, MORNING
     Route: 048
  4. HUMALOG MIX [Concomitant]
     Active Substance: INSULIN LISPRO
     Dosage: UNK UNK, THRICE DAILY, MORNING 15 NOON 12 EVENING 15
     Route: 065
  5. ONEALFA [Concomitant]
     Active Substance: ALFACALCIDOL
     Dosage: 0.5 ?G, TWICE DAILY, MORNING AND EVENING
     Route: 048
  6. ALDACTONE A [Concomitant]
     Active Substance: SPIRONOLACTONE
     Dosage: 25 MG, ONCE DAILY, MORNING
     Route: 048
  7. FAMOTIDINE. [Concomitant]
     Active Substance: FAMOTIDINE
     Dosage: 20 MG, ONCE DAILY, MORNING
     Route: 048
  8. TRAZENTA [Concomitant]
     Active Substance: LINAGLIPTIN
     Dosage: 5 MG, ONCE DAILY, AFTER BREAKFAST
     Route: 048
  9. SEIBULE [Concomitant]
     Active Substance: MIGLITOL
     Dosage: 50 MG, THRICE DAILY, JUST BEFORE EATING
     Route: 048
  10. CARVEDILOL. [Concomitant]
     Active Substance: CARVEDILOL
     Dosage: 20 MG, ONCE DAILY, MORNING
     Route: 048
  11. REBAMIPIDE [Concomitant]
     Active Substance: REBAMIPIDE
     Indication: BACK PAIN
     Dosage: 100 MG, TWICE DAILY, MORNING AND EVENING
     Route: 048
  12. IMIDAPRIL HYDROCHLORIDE [Concomitant]
     Active Substance: IMIDAPRIL HYDROCHLORIDE
     Dosage: 10 MG, ONCE DAILY, MORNING
     Route: 048
  13. BONVIVA [Concomitant]
     Active Substance: IBANDRONATE SODIUM
     Dosage: UNK UNK, MONTHLY
     Route: 065

REACTIONS (5)
  - Cardiac failure congestive [Fatal]
  - Renal impairment [Not Recovered/Not Resolved]
  - Nephropathy toxic [Not Recovered/Not Resolved]
  - Cardiac failure acute [Fatal]
  - Blood uric acid increased [Not Recovered/Not Resolved]

NARRATIVE: CASE EVENT DATE: 20190903
